FAERS Safety Report 8138772-5 (Version None)
Quarter: 2012Q1

REPORT INFORMATION
  Report Type: 
  Country: None (occurrence: None)
  Receive Date: 20120215
  Receipt Date: 20120210
  Transmission Date: 20120608
  Serious: Yes (Hospitalization)
  Sender: FDA-Public Use
  Company Number: JP-GLAXOSMITHKLINE-B0781303A

PATIENT
  Sex: Female

DRUGS (7)
  1. PAXIL [Suspect]
     Indication: DEPRESSION
     Route: 048
  2. PAXIL [Suspect]
     Dosage: 20MG PER DAY
     Route: 048
  3. METOCLOPRAMIDE [Concomitant]
  4. FLUID REPLACEMENT [Concomitant]
  5. INFUSION [Concomitant]
  6. LORAZEPAM [Concomitant]
  7. HORMONES [Concomitant]
     Indication: BREAST CANCER

REACTIONS (6)
  - PYREXIA [None]
  - DIZZINESS [None]
  - ASTHENIA [None]
  - DRUG WITHDRAWAL SYNDROME [None]
  - NAUSEA [None]
  - ANXIETY [None]
